FAERS Safety Report 5891862-X (Version None)
Quarter: 2008Q3

REPORT INFORMATION
  Report Type: 
  Country: None (occurrence: None)
  Receive Date: 20080922
  Receipt Date: 20080910
  Transmission Date: 20090109
  Serious: Yes (Other)
  Sender: FDA-Public Use
  Company Number: US-PFIZER INC-2008076430

PATIENT
  Sex: Female

DRUGS (1)
  1. NARDIL [Suspect]
     Dosage: DAILY DOSE:300MG
     Route: 048
     Dates: start: 20071201

REACTIONS (8)
  - CHEST PAIN [None]
  - DEPRESSION [None]
  - DIZZINESS [None]
  - FATIGUE [None]
  - HEADACHE [None]
  - NAUSEA [None]
  - PANIC ATTACK [None]
  - RENAL CANCER [None]
